FAERS Safety Report 4987004-5 (Version None)
Quarter: 2006Q2

REPORT INFORMATION
  Report Type: 
  Country: None (occurrence: None)
  Receive Date: 20060427
  Receipt Date: 20060427
  Transmission Date: 20061013
  Serious: Yes (Hospitalization)
  Sender: FDA-Public Use
  Company Number: None

PATIENT
  Age: 76 Year
  Sex: Female
  Weight: 124.7392 kg

DRUGS (2)
  1. TEQUIN [Suspect]
     Indication: CHRONIC OBSTRUCTIVE PULMONARY DISEASE
     Dosage: 400MG QD PO
     Route: 048
     Dates: start: 20060223, end: 20060302
  2. TEQUIN [Suspect]
     Indication: PNEUMONIA
     Dosage: 400MG QD PO
     Route: 048
     Dates: start: 20060223, end: 20060302

REACTIONS (3)
  - DIABETIC KETOACIDOSIS [None]
  - RENAL FAILURE ACUTE [None]
  - WEIGHT DECREASED [None]
